FAERS Safety Report 7048518-X (Version None)
Quarter: 2010Q4

REPORT INFORMATION
  Report Type: 
  Country: None (occurrence: None)
  Receive Date: 20101007
  Receipt Date: 20100921
  Transmission Date: 20110411
  Serious: Yes (Hospitalization)
  Sender: FDA-Public Use
  Company Number: AE 2010-288

PATIENT
  Age: 70 Year
  Sex: Female

DRUGS (1)
  1. PRIALT [Suspect]
     Indication: POST LAMINECTOMY SYNDROME
     Dosage: 0.07 UG/HOUR INTRATHECAL
     Route: 037
     Dates: start: 20100407, end: 20100723

REACTIONS (2)
  - MYALGIA [None]
  - MYOCLONUS [None]
